FAERS Safety Report 8920190 (Version 2)
Quarter: 2013Q1

REPORT INFORMATION
  Report Type: Report from Study
  Country: FR (occurrence: FR)
  Receive Date: 20121122
  Receipt Date: 20130308
  Transmission Date: 20140127
  Serious: Yes (Death, Disabling)
  Sender: FDA-Public Use
  Company Number: PHHY2012FR093315

PATIENT
  Age: 76 Year
  Sex: Male
  Weight: 62 kg

DRUGS (2)
  1. AFINITOR [Suspect]
     Indication: RENAL CELL CARCINOMA
     Dosage: 10 MG, QD
     Route: 048
     Dates: start: 20100416
  2. AFINITOR [Suspect]
     Dosage: 5 MG, QD
     Route: 048
     Dates: end: 20110127

REACTIONS (5)
  - General physical health deterioration [Fatal]
  - Neoplasm progression [Fatal]
  - Malignant neoplasm progression [Fatal]
  - Fatigue [Unknown]
  - Drug ineffective [Unknown]
